FAERS Safety Report 4982309-6 (Version None)
Quarter: 2006Q2

REPORT INFORMATION
  Report Type: 
  Country: None (occurrence: None)
  Receive Date: 20060425
  Receipt Date: 20050606
  Transmission Date: 20061013
  Serious: Yes (Other)
  Sender: FDA-Public Use
  Company Number: US-ROCHE-406945

PATIENT
  Age: 13 Year
  Sex: Male
  Weight: 72.6 kg

DRUGS (1)
  1. ACCUTANE [Suspect]
     Indication: ACNE
     Route: 048
     Dates: start: 19990415, end: 19990417

REACTIONS (32)
  - ALCOHOLIC PSYCHOSIS [None]
  - ALCOHOLISM [None]
  - ANKLE FRACTURE [None]
  - BLOOD GLUCOSE INCREASED [None]
  - CONTUSION [None]
  - DELUSION [None]
  - DEPRESSION [None]
  - EXCORIATION [None]
  - FLAT AFFECT [None]
  - GASTROOESOPHAGEAL REFLUX DISEASE [None]
  - HAEMATOCRIT DECREASED [None]
  - HAEMOGLOBIN DECREASED [None]
  - INITIAL INSOMNIA [None]
  - JAW DISORDER [None]
  - JOINT DISLOCATION [None]
  - LACERATION [None]
  - MEDIASTINAL HAEMATOMA [None]
  - MUSCULOSKELETAL CHEST PAIN [None]
  - PNEUMOMEDIASTINUM [None]
  - PNEUMONIA [None]
  - RED BLOOD CELL COUNT DECREASED [None]
  - RIB FRACTURE [None]
  - SCHIZOPHRENIA [None]
  - SELF ESTEEM DECREASED [None]
  - SUICIDAL IDEATION [None]
  - SUICIDE ATTEMPT [None]
  - THERMAL BURN [None]
  - TONGUE INJURY [None]
  - TOOTH INJURY [None]
  - TRAUMATIC HAEMATOMA [None]
  - WHITE BLOOD CELL COUNT INCREASED [None]
  - WOUND [None]
